FAERS Safety Report 10575169 (Version 4)
Quarter: 2014Q4

REPORT INFORMATION
  Report Type: Spontaneous
  Country: US (occurrence: US)
  Receive Date: 20141111
  Receipt Date: 20141223
  Transmission Date: 20150529
  Serious: Yes (Other)
  Sender: FDA-Public Use
  Company Number: US-ELI_LILLY_AND_COMPANY-US201411003559

PATIENT
  Sex: Female

DRUGS (3)
  1. PROZAC [Suspect]
     Active Substance: FLUOXETINE HYDROCHLORIDE
     Indication: DEPRESSION
     Dosage: 20 MG, QD
     Route: 065
     Dates: start: 1994
  2. VICODIN [Concomitant]
     Active Substance: ACETAMINOPHEN\HYDROCODONE BITARTRATE
     Indication: PAIN
     Dosage: 1 DF, PRN
     Route: 065
  3. PRENATAL [Concomitant]
     Active Substance: VITAMINS
     Indication: PRENATAL CARE
     Dosage: 0.8 MG, QD
     Route: 065

REACTIONS (7)
  - Abdominal pain lower [Unknown]
  - Back pain [Unknown]
  - Renal disorder [Unknown]
  - Threatened labour [Recovered/Resolved]
  - Vaginal haemorrhage [Unknown]
  - Renal cyst [Unknown]
  - Exposure during pregnancy [Recovered/Resolved]
